FAERS Safety Report 4868147-3 (Version None)
Quarter: 2005Q4

REPORT INFORMATION
  Report Type: 
  Country: None (occurrence: None)
  Receive Date: 20051227
  Receipt Date: 20051213
  Transmission Date: 20060501
  Serious: Yes (Hospitalization, Other)
  Sender: FDA-Public Use
  Company Number: US-JNJFOC-20050901270

PATIENT
  Age: 46 Year
  Sex: Female
  Weight: 85.7298 kg

DRUGS (11)
  1. RISPERDAL [Suspect]
     Indication: PSYCHOTIC DISORDER
     Dosage: SEE IMAGE
     Route: 048
     Dates: start: 20000101
  2. RISPERDAL [Suspect]
     Indication: SCHIZOPHRENIA
     Dosage: SEE IMAGE
     Route: 048
     Dates: start: 20000101
  3. RISPERDAL [Suspect]
     Indication: PSYCHOTIC DISORDER
     Dosage: SEE IMAGE
     Route: 048
     Dates: start: 20010101
  4. RISPERDAL [Suspect]
     Indication: SCHIZOPHRENIA
     Dosage: SEE IMAGE
     Route: 048
     Dates: start: 20010101
  5. GLUCOPHAGE [Concomitant]
  6. ALBUTEROL [Concomitant]
  7. ADVAIR (SERETID MITE) [Concomitant]
  8. LORICET (LORAZEPAM) [Concomitant]
  9. SOMA [Concomitant]
  10. ACETAMINOPHEN [Concomitant]
  11. SEROQUEL [Concomitant]

REACTIONS (6)
  - DIABETES MELLITUS NON-INSULIN-DEPENDENT [None]
  - GASTRIC ULCER [None]
  - HELICOBACTER INFECTION [None]
  - INCREASED APPETITE [None]
  - NAUSEA [None]
  - WEIGHT INCREASED [None]
